FAERS Safety Report 18407444 (Version 1)
Quarter: 2020Q4

REPORT INFORMATION
  Report Type: Spontaneous
  Country: US (occurrence: US)
  Receive Date: 20201021
  Receipt Date: 20201021
  Transmission Date: 20210114
  Serious: Yes (Hospitalization)
  Sender: FDA-Public Use
  Company Number: US-HORIZON-2020HZN00184

PATIENT
  Age: 28 Year
  Sex: Male

DRUGS (1)
  1. RAVICTI [Suspect]
     Active Substance: GLYCEROL PHENYLBUTYRATE
     Indication: UREA CYCLE DISORDER
     Dosage: 6ML BY MOUTH THREE TIMES DAILY WITH FOOD ; TIME INTERVAL: 0.33 D
     Route: 050
     Dates: start: 20200326

REACTIONS (2)
  - Product administration error [Unknown]
  - Seizure [Not Recovered/Not Resolved]
